FAERS Safety Report 17746803 (Version 2)
Quarter: 2024Q2

REPORT INFORMATION
  Report Type: Other
  Country: IT (occurrence: IT)
  Receive Date: 20200505
  Receipt Date: 20240530
  Transmission Date: 20240715
  Serious: Yes (Hospitalization, Congenital Anomaly, Other)
  Sender: FDA-Public Use
  Company Number: IT-ROCHE-2590525

PATIENT
  Sex: Female
  Weight: 2.021 kg

DRUGS (4)
  1. DIAZEPAM [Suspect]
     Active Substance: DIAZEPAM
     Indication: Product used for unknown indication
     Dosage: 1-2 MG PER DAY
     Route: 064
  2. SERTRALINE [Concomitant]
     Active Substance: SERTRALINE HYDROCHLORIDE
     Route: 064
  3. LORAZEPAM [Concomitant]
     Active Substance: LORAZEPAM
     Dosage: 10 DROPS PER DAY
     Route: 064
  4. ACETAMINOPHEN [Concomitant]
     Active Substance: ACETAMINOPHEN
     Dosage: 2-4 GRAM PER DAY IN THE FIRST TRIMESTER AND 1-2 GRAM OCCASIONALLY IN THE SECOND AND THIRD TRIMESTER
     Route: 064

REACTIONS (12)
  - Neonatal pulmonary hypertension [Recovered/Resolved]
  - Neonatal hypoxia [Recovered/Resolved]
  - Congenital pulmonary valve disorder [Recovered/Resolved]
  - Ductus arteriosus premature closure [Recovered/Resolved]
  - Tricuspid valve incompetence [Recovered/Resolved]
  - Right ventricular failure [Recovered/Resolved]
  - Right ventricular dilatation [Recovered/Resolved]
  - Right ventricular dysfunction [Recovered/Resolved]
  - Right ventricular hypertrophy [Recovered/Resolved]
  - Ultrasound Doppler abnormal [Recovered/Resolved]
  - Low birth weight baby [Unknown]
  - Foetal exposure during pregnancy [Unknown]
